FAERS Safety Report 21883978 (Version 3)
Quarter: 2023Q2

REPORT INFORMATION
  Report Type: Spontaneous
  Country: US (occurrence: None)
  Receive Date: 20230119
  Receipt Date: 20230407
  Transmission Date: 20230721
  Serious: No
  Sender: FDA-Public Use
  Company Number: 2023A006180

PATIENT
  Age: 21063 Day
  Sex: Female
  Weight: 50.3 kg

DRUGS (3)
  1. PULMICORT TURBUHALER [Suspect]
     Active Substance: BUDESONIDE
     Indication: Asthma
     Dosage: 0.5MG UNKNOWN
     Route: 055
  2. PULMICORT TURBUHALER [Suspect]
     Active Substance: BUDESONIDE
     Indication: Chronic obstructive pulmonary disease
     Dosage: 0.5MG UNKNOWN
     Route: 055
  3. PULMICORT TURBUHALER [Suspect]
     Active Substance: BUDESONIDE
     Indication: Emphysema
     Dosage: 0.5MG UNKNOWN
     Route: 055

REACTIONS (6)
  - Feeling abnormal [Unknown]
  - Illness anxiety disorder [Unknown]
  - Off label use [Unknown]
  - Device use issue [Unknown]
  - Insurance issue [Unknown]
  - Product packaging issue [Unknown]

NARRATIVE: CASE EVENT DATE: 20230101
